FAERS Safety Report 10645702 (Version 3)
Quarter: 2014Q4

REPORT INFORMATION
  Report Type: Spontaneous
  Country: JP (occurrence: JP)
  Receive Date: 20141211
  Receipt Date: 20141231
  Transmission Date: 20150529
  Serious: Yes (Other)
  Sender: FDA-Public Use
  Company Number: JP-SA-2014SA143001

PATIENT
  Age: 78 Year
  Sex: Female
  Weight: 32 kg

DRUGS (13)
  1. OMEPRAL [Concomitant]
     Active Substance: OMEPRAZOLE
  2. REBAMIPIDE [Concomitant]
     Active Substance: REBAMIPIDE
  3. RISPERDAL [Interacting]
     Active Substance: RISPERIDONE
     Indication: BEHAVIOURAL AND PSYCHIATRIC SYMPTOMS OF DEMENTIA
     Route: 048
     Dates: start: 20141001, end: 20141021
  4. EVISTA [Concomitant]
     Active Substance: RALOXIFENE HYDROCHLORIDE
  5. RISPERDAL [Interacting]
     Active Substance: RISPERIDONE
     Indication: BEHAVIOURAL AND PSYCHIATRIC SYMPTOMS OF DEMENTIA
     Route: 048
     Dates: start: 20131111, end: 20140928
  6. GALANTAMINE HYDROBROMIDE. [Concomitant]
     Active Substance: GALANTAMINE HYDROBROMIDE
     Dosage: ORODISPERSIBLE TABLET
     Route: 048
  7. MEMARY [Concomitant]
     Active Substance: MEMANTINE HYDROCHLORIDE
  8. BENZALIN [Concomitant]
     Active Substance: NITRAZEPAM
  9. CELECOX [Interacting]
     Active Substance: CELECOXIB
     Indication: SPINAL COMPRESSION FRACTURE
     Route: 048
     Dates: start: 20140929, end: 20140930
  10. GABALON [Concomitant]
     Active Substance: BACLOFEN
  11. MYSLEE [Suspect]
     Active Substance: ZOLPIDEM TARTRATE
     Indication: INSOMNIA
     Route: 048
  12. VESICARE [Concomitant]
     Active Substance: SOLIFENACIN SUCCINATE
     Dosage: ORODISPERSIBLE TABLET
     Route: 048
  13. METHYCOBAL [Concomitant]
     Active Substance: METHYLCOBALAMIN

REACTIONS (3)
  - Intentional product use issue [Unknown]
  - Parkinson^s disease [Recovered/Resolved]
  - Drug interaction [Unknown]

NARRATIVE: CASE EVENT DATE: 20140929
